FAERS Safety Report 12972547 (Version 1)
Quarter: 2016Q4

REPORT INFORMATION
  Report Type: Report from Study
  Country: US (occurrence: US)
  Receive Date: 20161124
  Receipt Date: 20161124
  Transmission Date: 20170207
  Serious: Yes (Congenital Anomaly, Other)
  Sender: FDA-Public Use
  Company Number: US-PROSTRAKAN-2016-US-0063

PATIENT

DRUGS (2)
  1. SANCUSO [Suspect]
     Active Substance: GRANISETRON
     Indication: DRUG LEVEL
     Dosage: 1 MG IV OVER 5 MINUTES
     Route: 042
  2. GRANISETRON [Suspect]
     Active Substance: GRANISETRON
     Indication: DRUG LEVEL
     Dosage: 1 PATCH FOR 7 DAYS
     Route: 062
     Dates: start: 20121127, end: 20121203

REACTIONS (6)
  - Product adhesion issue [Unknown]
  - Maternal exposure during pregnancy [None]
  - Headache [Unknown]
  - Abortion induced [Unknown]
  - Constipation [Recovered/Resolved]
  - Exposure during pregnancy [Unknown]

NARRATIVE: CASE EVENT DATE: 20121129
